FAERS Safety Report 10648826 (Version 3)
Quarter: 2014Q4

REPORT INFORMATION
  Report Type: Report from Study
  Country: US (occurrence: US)
  Receive Date: 20141212
  Receipt Date: 20141218
  Transmission Date: 20150529
  Serious: Yes (Other)
  Sender: FDA-Public Use
  Company Number: US-SA-2014SA081204

PATIENT
  Age: 50 Year
  Sex: Female
  Weight: 61.68 kg

DRUGS (2)
  1. GABAPENTIN. [Concomitant]
     Active Substance: GABAPENTIN
  2. AUBAGIO [Suspect]
     Active Substance: TERIFLUNOMIDE
     Indication: MULTIPLE SCLEROSIS
     Route: 048
     Dates: start: 20140611, end: 20141126

REACTIONS (19)
  - Abdominal discomfort [Unknown]
  - Malaise [Not Recovered/Not Resolved]
  - Abdominal discomfort [Unknown]
  - Chest discomfort [Unknown]
  - Hepatic function abnormal [Unknown]
  - Nausea [Unknown]
  - Headache [Unknown]
  - Gait disturbance [Unknown]
  - Pain [Not Recovered/Not Resolved]
  - Pruritus [Not Recovered/Not Resolved]
  - Palpitations [Unknown]
  - Renal impairment [Unknown]
  - Eye discharge [Unknown]
  - Insomnia [Unknown]
  - Bite [Not Recovered/Not Resolved]
  - Abdominal pain upper [Unknown]
  - Skin lesion [Not Recovered/Not Resolved]
  - Anxiety [Unknown]
  - Skin disorder [Not Recovered/Not Resolved]

NARRATIVE: CASE EVENT DATE: 20140612
